FAERS Safety Report 21032058 (Version 1)
Quarter: 2022Q3

REPORT INFORMATION
  Report Type: Spontaneous
  Country: US (occurrence: US)
  Receive Date: 20220701
  Receipt Date: 20220701
  Transmission Date: 20221026
  Serious: No
  Sender: FDA-Public Use
  Company Number: US-Accord-227604

PATIENT
  Sex: Male
  Weight: 66.68 kg

DRUGS (4)
  1. MYCOPHENOLATE MOFETIL [Suspect]
     Active Substance: MYCOPHENOLATE MOFETIL
     Indication: Morphoea
     Dosage: TWICE A DAY, DISPENSED IN PHARMACY BOTTLE
     Route: 048
     Dates: start: 20210524
  2. TRULICITY [Concomitant]
     Active Substance: DULAGLUTIDE
     Dosage: ONCE A WEEK
  3. LEVOTHYROXINE [Concomitant]
     Active Substance: LEVOTHYROXINE
  4. LISINOPRIL [Concomitant]
     Active Substance: LISINOPRIL

REACTIONS (3)
  - Product use complaint [Unknown]
  - Wrong technique in product usage process [Unknown]
  - Off label use [Unknown]
